FAERS Safety Report 5501837-8 (Version None)
Quarter: 2007Q4

REPORT INFORMATION
  Report Type: 
  Country: None (occurrence: None)
  Receive Date: 20071030
  Receipt Date: 20061228
  Transmission Date: 20080405
  Serious: Yes (Other)
  Sender: FDA-Public Use
  Company Number: A0632880A

PATIENT
  Age: 67 Year
  Sex: Female

DRUGS (7)
  1. SEREVENT [Suspect]
     Indication: ASTHMA
     Dosage: 1PUFF TWICE PER DAY
     Route: 055
     Dates: start: 20060929, end: 20061101
  2. FOSAMAX [Concomitant]
  3. DILTIAZEM [Concomitant]
  4. WARFARIN SODIUM [Concomitant]
  5. FLUOXETINE [Concomitant]
  6. SINGULAIR [Concomitant]
  7. PROVENTIL [Concomitant]

REACTIONS (2)
  - ASTHMA [None]
  - DRUG INEFFECTIVE [None]
